FAERS Safety Report 6496757-9 (Version None)
Quarter: 2009Q4

REPORT INFORMATION
  Report Type: 
  Country: None (occurrence: None)
  Receive Date: 20091211
  Receipt Date: 20091201
  Transmission Date: 20100525
  Serious: Yes (Death)
  Sender: FDA-Public Use
  Company Number: 148

PATIENT
  Age: 46 Year
  Sex: Female

DRUGS (1)
  1. FAZACLO ODT [Suspect]
     Dosage: 300 MG PO DAILY
     Route: 048
     Dates: start: 20061013, end: 20070801

REACTIONS (1)
  - THERAPEUTIC AGENT TOXICITY [None]
